FAERS Safety Report 4455775-2 (Version None)
Quarter: 2004Q3

REPORT INFORMATION
  Report Type: 
  Country: None (occurrence: None)
  Receive Date: 20040920
  Receipt Date: 20040903
  Transmission Date: 20050211
  Serious: Yes (Death)
  Sender: FDA-Public Use
  Company Number: S04-FRA-04095-01

PATIENT
  Age: 40 Year
  Sex: Female

DRUGS (4)
  1. CITALOPRAM HYDROBROMIDE [Suspect]
     Dates: end: 20040310
  2. LITHIUM CARBONATE [Suspect]
     Dates: end: 20040310
  3. PROTHIADEN [Suspect]
     Dates: end: 20040310
  4. NORDAZEPAM [Concomitant]

REACTIONS (9)
  - ARRHYTHMIA [None]
  - ASPHYXIA [None]
  - DRUG INTERACTION [None]
  - FOREIGN BODY ASPIRATION [None]
  - HEPATIC STEATOSIS [None]
  - OVERDOSE [None]
  - PULMONARY EMBOLISM [None]
  - PULMONARY OEDEMA [None]
  - TOXICOLOGIC TEST ABNORMAL [None]
